FAERS Safety Report 21897862 (Version 1)
Quarter: 2023Q1

REPORT INFORMATION
  Report Type: Spontaneous
  Country: AU (occurrence: AU)
  Receive Date: 20230123
  Receipt Date: 20230123
  Transmission Date: 20230417
  Serious: Yes (Other)
  Sender: FDA-Public Use
  Company Number: AU-GUERBET / ASPEN AUSTRALIA-AU-20210176

PATIENT
  Age: 58 Year
  Sex: Male
  Weight: 129 kg

DRUGS (1)
  1. DOTAREM [Suspect]
     Active Substance: GADOTERATE MEGLUMINE
     Indication: Magnetic resonance imaging
     Route: 042
     Dates: start: 20210929, end: 20210929

REACTIONS (3)
  - Feeling hot [Recovered/Resolved]
  - Urticaria [Recovered/Resolved]
  - Rhinorrhoea [Recovered/Resolved]

NARRATIVE: CASE EVENT DATE: 20210929
